FAERS Safety Report 15668884 (Version 1)
Quarter: 2018Q4

REPORT INFORMATION
  Report Type: Spontaneous
  Country: NO (occurrence: NO)
  Receive Date: 20181129
  Receipt Date: 20181129
  Transmission Date: 20190205
  Serious: Yes (Hospitalization)
  Sender: FDA-Public Use
  Company Number: NO-009507513-1811NOR007923

PATIENT
  Age: 80 Year
  Sex: Male

DRUGS (3)
  1. ALBYL-E [Concomitant]
     Active Substance: ASPIRIN\MAGNESIUM OXIDE
     Indication: THROMBOSIS PROPHYLAXIS
     Dosage: 75 MILLIGRAM, Q24H
     Route: 048
     Dates: start: 2015, end: 20181022
  2. SIMVASTATIN. [Suspect]
     Active Substance: SIMVASTATIN
     Indication: CEREBRAL ISCHAEMIA
     Dosage: 40 MILLIGRAM, Q24H
     Route: 048
     Dates: start: 201804, end: 20181022
  3. BETMIGA [Concomitant]
     Active Substance: MIRABEGRON
     Indication: URINARY INCONTINENCE
     Dosage: 50 MILLIGRAM, Q24H
     Route: 048
     Dates: start: 201711, end: 20181022

REACTIONS (3)
  - Rhabdomyolysis [Recovering/Resolving]
  - Muscular weakness [Recovering/Resolving]
  - Somatic dysfunction [Recovering/Resolving]

NARRATIVE: CASE EVENT DATE: 201810
